FAERS Safety Report 5917643-6 (Version None)
Quarter: 2008Q4

REPORT INFORMATION
  Report Type: 
  Country: None (occurrence: None)
  Receive Date: 20081010
  Receipt Date: 20081010
  Transmission Date: 20090506
  Serious: Yes (Disabling)
  Sender: FDA-Public Use
  Company Number: None

PATIENT
  Age: 38 Year
  Sex: Female
  Weight: 49.8957 kg

DRUGS (1)
  1. MIRENA [Suspect]

REACTIONS (3)
  - IUCD COMPLICATION [None]
  - NO THERAPEUTIC RESPONSE [None]
  - VULVOVAGINAL MYCOTIC INFECTION [None]
